FAERS Safety Report 8374650-4 (Version None)
Quarter: 2012Q2

REPORT INFORMATION
  Report Type: 
  Country: None (occurrence: None)
  Receive Date: 20120521
  Receipt Date: 20120119
  Transmission Date: 20120825
  Serious: No
  Sender: FDA-Public Use
  Company Number: US-ASTRAZENECA-2012SE08728

PATIENT
  Sex: Female

DRUGS (3)
  1. PRILOSEC OTC [Suspect]
     Indication: GASTROOESOPHAGEAL REFLUX DISEASE
     Dosage: UNKNOWN
     Route: 048
  2. DIFLUCAN [Interacting]
     Dosage: UNKNOWN
  3. TOPICAL ANTIFUNGAL OINTMENT [Concomitant]
     Dosage: UNKNOWN

REACTIONS (3)
  - LABELLED DRUG-DRUG INTERACTION MEDICATION ERROR [None]
  - OFF LABEL USE [None]
  - EPISTAXIS [None]
